FAERS Safety Report 25685287 (Version 1)
Quarter: 2025Q3

REPORT INFORMATION
  Report Type: Spontaneous
  Country: TR (occurrence: TR)
  Receive Date: 20250815
  Receipt Date: 20250815
  Transmission Date: 20251021
  Serious: Yes (Hospitalization, Other)
  Sender: AMNEAL
  Company Number: TR-AMNEAL PHARMACEUTICALS-2025-AMRX-03079

PATIENT
  Age: 20 Year
  Sex: Male

DRUGS (1)
  1. DOXYCYCLINE HYCLATE [Suspect]
     Active Substance: DOXYCYCLINE HYCLATE
     Indication: Acne
     Route: 065

REACTIONS (1)
  - Hepatitis toxic [Unknown]
